FAERS Safety Report 8115476-6 (Version None)
Quarter: 2012Q1

REPORT INFORMATION
  Report Type: 
  Country: None (occurrence: None)
  Receive Date: 20120206
  Receipt Date: 20120124
  Transmission Date: 20120608
  Serious: Yes (Other)
  Sender: FDA-Public Use
  Company Number: US-SANOFI-AVENTIS-2011SA078185

PATIENT
  Age: 50 Year
  Sex: Male

DRUGS (3)
  1. AVANDIA [Suspect]
     Dates: start: 20050101, end: 20110601
  2. ALLEGRA [Suspect]
  3. ALLEGRA [Suspect]

REACTIONS (3)
  - ABDOMINAL DISTENSION [None]
  - WEIGHT DECREASED [None]
  - RENAL DISORDER [None]
